FAERS Safety Report 6464831-9 (Version None)
Quarter: 2009Q4

REPORT INFORMATION
  Report Type: 
  Country: None (occurrence: None)
  Receive Date: 20091201
  Receipt Date: 20091125
  Transmission Date: 20100525
  Serious: Yes (Other)
  Sender: FDA-Public Use
  Company Number: A0828401A

PATIENT
  Age: 70 Year
  Sex: Female

DRUGS (1)
  1. NICODERM CQ [Suspect]

REACTIONS (4)
  - CEREBROVASCULAR ACCIDENT [None]
  - CONVULSION [None]
  - HYPERTENSIVE CRISIS [None]
  - TERMINAL STATE [None]
